FAERS Safety Report 8308950-0 (Version None)
Quarter: 2012Q2

REPORT INFORMATION
  Report Type: 
  Country: None (occurrence: None)
  Receive Date: 20120424
  Receipt Date: 20120418
  Transmission Date: 20120825
  Serious: Yes (Other)
  Sender: FDA-Public Use
  Company Number: US-VERTEX PHARMACEUTICALS INC.-AE-2012-003727

PATIENT
  Sex: Male

DRUGS (3)
  1. PEGASYS [Concomitant]
     Indication: HEPATITIS C
     Route: 058
     Dates: start: 20120227, end: 20120415
  2. INCIVEK [Suspect]
     Indication: HEPATITIS C
     Route: 048
     Dates: start: 20120227, end: 20120415
  3. RIBAVIRIN [Concomitant]
     Indication: HEPATITIS C
     Route: 048
     Dates: start: 20120227, end: 20120415

REACTIONS (10)
  - DEPRESSION [None]
  - DYSGEUSIA [None]
  - DRY SKIN [None]
  - DECREASED APPETITE [None]
  - ANORECTAL DISCOMFORT [None]
  - RASH GENERALISED [None]
  - FATIGUE [None]
  - WEIGHT DECREASED [None]
  - NAUSEA [None]
  - ANXIETY [None]
